FAERS Safety Report 9237002 (Version 2)
Quarter: 2013Q2

REPORT INFORMATION
  Report Type: Spontaneous
  Country: IT (occurrence: None)
  Receive Date: 20130415
  Receipt Date: 20130422
  Transmission Date: 20140414
  Serious: Yes (Hospitalization)
  Sender: FDA-Public Use
  Company Number: AUR-APL-2013-03022

PATIENT
  Age: 42 Year
  Sex: Female

DRUGS (3)
  1. MIRTAZAPINE [Suspect]
     Indication: DEPRESSION
     Dosage: (1 DOSAGE FORMS, TOTAL), ORAL
     Route: 048
     Dates: start: 20130329, end: 20130329
  2. RIVOTRIL [Suspect]
     Indication: DEPRESSION
     Dosage: (1 DOSAGE FORMS, TOTAL), ORAL
     Route: 048
     Dates: start: 20130329, end: 20130329
  3. SEROQUEL [Suspect]
     Indication: DEPRESSION
     Dosage: (1 DOSAGE FORMS, TOTAL ), ORAL
     Route: 048
     Dates: start: 20130329, end: 20130329

REACTIONS (4)
  - Intentional self-injury [None]
  - Drug abuse [None]
  - Sopor [None]
  - Hypotension [None]
